FAERS Safety Report 13829227 (Version 8)
Quarter: 2018Q4

REPORT INFORMATION
  Report Type: Spontaneous
  Country: US (occurrence: US)
  Receive Date: 20170803
  Receipt Date: 20181031
  Transmission Date: 20190204
  Serious: Yes (Other)
  Sender: FDA-Public Use
  Company Number: US-009507513-1708USA000688

PATIENT
  Age: 85 Year
  Sex: Female

DRUGS (8)
  1. PANTOPRAZOLE [Concomitant]
     Active Substance: PANTOPRAZOLE
  2. ZOCOR [Concomitant]
     Active Substance: SIMVASTATIN
  3. WARFARIN [Concomitant]
     Active Substance: WARFARIN
  4. METFORMIN [Suspect]
     Active Substance: METFORMIN HYDROCHLORIDE
  5. METOPROLOL TARTRATE. [Concomitant]
     Active Substance: METOPROLOL TARTRATE
  6. LISINOPRIL. [Concomitant]
     Active Substance: LISINOPRIL
  7. JANUVIA [Suspect]
     Active Substance: SITAGLIPTIN PHOSPHATE
     Indication: TYPE 2 DIABETES MELLITUS
     Dosage: 100 MG ONCE DAILY
     Route: 048
     Dates: start: 20170714
  8. HYDROCHLOROTHIAZIDE. [Concomitant]
     Active Substance: HYDROCHLOROTHIAZIDE

REACTIONS (11)
  - Blood glucose increased [Not Recovered/Not Resolved]
  - Constipation [Unknown]
  - Paraesthesia [Unknown]
  - Skin discolouration [Unknown]
  - Erythema [Recovering/Resolving]
  - Arthralgia [Unknown]
  - Purulent discharge [Unknown]
  - Pruritus [Recovering/Resolving]
  - Bloody discharge [Unknown]
  - Skin lesion [Unknown]
  - Memory impairment [Unknown]

NARRATIVE: CASE EVENT DATE: 2017
